FAERS Safety Report 24939112 (Version 1)
Quarter: 2025Q1

REPORT INFORMATION
  Report Type: Spontaneous
  Country: US (occurrence: US)
  Receive Date: 20250206
  Receipt Date: 20250206
  Transmission Date: 20250409
  Serious: No
  Sender: ALEXION PHARMACEUTICALS
  Company Number: US-AstraZeneca-CH-00801184AP

PATIENT

DRUGS (1)
  1. BYETTA [Suspect]
     Active Substance: EXENATIDE

REACTIONS (4)
  - Device breakage [Unknown]
  - Device delivery system issue [Unknown]
  - Exposure during pregnancy [Unknown]
  - Breast pain [Unknown]
